FAERS Safety Report 6238862-8 (Version None)
Quarter: 2009Q2

REPORT INFORMATION
  Report Type: 
  Country: None (occurrence: None)
  Receive Date: 20090618
  Receipt Date: 20090610
  Transmission Date: 20091009
  Serious: Yes (Life-Threatening, Hospitalization)
  Sender: FDA-Public Use
  Company Number: OMPQ-NO-0906S-0436

PATIENT
  Age: 40 Year
  Sex: Female

DRUGS (2)
  1. OMNIPAQUE 300 [Suspect]
     Indication: AORTIC DISSECTION
     Dosage: 100 ML, I.V.
     Route: 042
     Dates: start: 20090608, end: 20090608
  2. OMNIPAQUE 300 [Suspect]
     Indication: HEPATIC FUNCTION ABNORMAL
     Dosage: 100 ML, I.V.
     Route: 042
     Dates: start: 20090608, end: 20090608

REACTIONS (1)
  - CARDIO-RESPIRATORY ARREST [None]
